FAERS Safety Report 8686918 (Version 2)
Quarter: 2012Q4

REPORT INFORMATION
  Report Type: Spontaneous
  Country: US (occurrence: None)
  Receive Date: 20120710
  Receipt Date: 20120824
  Transmission Date: 20130627
  Serious: Yes (Hospitalization)
  Sender: FDA-Public Use
  Company Number: UTC-020426

PATIENT
  Age: 34 Year
  Sex: Female

DRUGS (5)
  1. REMODULIN [Suspect]
     Indication: PRIMARY PULMONARY HYPERTENSION
     Dosage: 119.52 UG/KG (0.083 UG/KG, 1 IN 1 MIN), INTRAVENOUS
     Dates: start: 20081118, end: 20120726
  2. REMODULIN [Suspect]
     Indication: PRIMARY PULMONARY HYPERTENSION
     Route: 042
     Dates: start: 2008
  3. TRACLEER [Suspect]
  4. COUMADIN [Concomitant]
  5. REVATIO [Concomitant]

REACTIONS (6)
  - Drug effect decreased [None]
  - Lung transplant [None]
  - Tricuspid valve disease [None]
  - Right ventricular failure [None]
  - Pulmonary arterial pressure increased [None]
  - Condition aggravated [None]
